FAERS Safety Report 8595146-0 (Version None)
Quarter: 2012Q3

REPORT INFORMATION
  Report Type: 
  Country: None (occurrence: None)
  Receive Date: 20120807
  Receipt Date: 20120807
  Transmission Date: 20120928
  Serious: Yes (Hospitalization)
  Sender: FDA-Public Use
  Company Number: None

PATIENT
  Age: 68 Year
  Sex: Male
  Weight: 88.2 kg

DRUGS (2)
  1. METOPROLOL 25MG RANBAXY [Suspect]
     Indication: CARDIAC DISORDER
     Dosage: 25 MG 2 X DAILY 064
     Dates: start: 19940101
  2. WARFARIN SODIUM [Suspect]
     Indication: THROMBOSIS
     Dosage: 6 MG 1 X DAILY 064
     Dates: start: 19920101

REACTIONS (3)
  - BLOOD URINE PRESENT [None]
  - CYSTITIS [None]
  - DRUG INEFFECTIVE [None]
